FAERS Safety Report 9447895 (Version 2)
Quarter: 2013Q3

REPORT INFORMATION
  Report Type: Report from Study
  Country: BR (occurrence: BR)
  Receive Date: 20130808
  Receipt Date: 20130912
  Transmission Date: 20140515
  Serious: Yes (Hospitalization)
  Sender: FDA-Public Use
  Company Number: PHHY2013BR083870

PATIENT
  Age: 57 Year
  Sex: Female
  Weight: 61 kg

DRUGS (11)
  1. CERTICAN [Suspect]
     Indication: RENAL TRANSPLANT
     Dosage: 1.5 MG, Q12H
     Route: 048
     Dates: start: 20120408, end: 20120921
  2. SIMULECT [Suspect]
     Indication: RENAL TRANSPLANT
     Dosage: 20 MG, INTRAOPERATIVE
     Route: 042
     Dates: start: 20120407
  3. SIMULECT [Suspect]
     Dosage: 20 MG
     Route: 042
     Dates: start: 20120411
  4. TACROLIMUS [Suspect]
     Indication: RENAL TRANSPLANT
     Dosage: 5 MG, Q12H
     Route: 048
     Dates: start: 20120408
  5. PREDNISONE [Suspect]
     Indication: RENAL TRANSPLANT
     Dosage: 30 MG, DAILY
     Route: 048
     Dates: start: 20120408, end: 20120424
  6. PREDNISONE [Suspect]
     Dosage: 20 MG, DAILY
     Route: 048
     Dates: start: 20120425, end: 20120507
  7. PREDNISONE [Suspect]
     Dosage: 10 MG, DAILY
     Route: 048
     Dates: start: 20120508, end: 20120510
  8. PREDNISONE [Suspect]
     Dosage: 5 MG, DAILY
     Route: 048
  9. RANITIDINE [Concomitant]
     Indication: PROPHYLAXIS AGAINST GASTROINTESTINAL ULCER
     Dosage: 150 MG, Q12H
     Route: 048
     Dates: start: 20120407
  10. SULFAMETHOXAZOLE AND TRIMETHOPRIM [Concomitant]
     Indication: ANTIFUNGAL PROPHYLAXIS
     Dosage: 1 DF (400/80MG), QD
     Route: 048
     Dates: start: 20120407
  11. AMLODIPINE [Concomitant]
     Indication: HYPERTENSION
     Dosage: 5 MG, Q12H
     Route: 048

REACTIONS (6)
  - Deep vein thrombosis [Recovering/Resolving]
  - Mastitis [Not Recovered/Not Resolved]
  - Breast inflammation [Not Recovered/Not Resolved]
  - Breast oedema [Not Recovered/Not Resolved]
  - Erythema [Not Recovered/Not Resolved]
  - Feeling hot [Not Recovered/Not Resolved]
